FAERS Safety Report 8409902 (Version 3)
Quarter: 2014Q4

REPORT INFORMATION
  Report Type: Spontaneous
  Country: GB (occurrence: GB)
  Receive Date: 20120216
  Receipt Date: 20141105
  Transmission Date: 20150529
  Serious: Yes (Death, Other)
  Sender: FDA-Public Use
  Company Number: GB-TEVA-321590ISR

PATIENT
  Age: 36 Year
  Sex: Male

DRUGS (8)
  1. FOLIC ACID. [Concomitant]
     Active Substance: FOLIC ACID
  2. CLONAZEPAM. [Concomitant]
     Active Substance: CLONAZEPAM
  3. SIMVASTATIN. [Suspect]
     Active Substance: SIMVASTATIN
     Route: 048
  4. SODIUM VALPROATE [Concomitant]
     Active Substance: VALPROATE SODIUM
  5. CLOZAPINE. [Suspect]
     Active Substance: CLOZAPINE
     Indication: SCHIZOPHRENIA
     Route: 048
     Dates: end: 20120109
  6. WARFARIN [Concomitant]
     Active Substance: WARFARIN
  7. ARIPIPRAZOLE. [Suspect]
     Active Substance: ARIPIPRAZOLE
     Indication: SCHIZOPHRENIA
     Route: 048
  8. OMEPRAZOLE. [Concomitant]
     Active Substance: OMEPRAZOLE

REACTIONS (7)
  - Circulatory collapse [Unknown]
  - Blood creatine phosphokinase increased [Unknown]
  - Hepatic function abnormal [Unknown]
  - Large intestine perforation [Fatal]
  - Renal impairment [Unknown]
  - Neuroleptic malignant syndrome [Fatal]
  - Peritonitis [Fatal]

NARRATIVE: CASE EVENT DATE: 20120109
